FAERS Safety Report 24140453 (Version 1)
Quarter: 2024Q3

REPORT INFORMATION
  Report Type: Spontaneous
  Country: CA (occurrence: CA)
  Receive Date: 20240726
  Receipt Date: 20240726
  Transmission Date: 20241017
  Serious: Yes (Other)
  Sender: TEVA
  Company Number: CA-TEVA-VS-3222613

PATIENT
  Age: 83 Year
  Sex: Male

DRUGS (5)
  1. METHOTREXATE SODIUM [Suspect]
     Active Substance: METHOTREXATE SODIUM
     Indication: Product used for unknown indication
     Route: 065
  2. INFLECTRA [Suspect]
     Active Substance: INFLIXIMAB-DYYB
     Indication: Rheumatoid arthritis
     Route: 042
  3. INFLECTRA [Suspect]
     Active Substance: INFLIXIMAB-DYYB
     Indication: Rheumatoid arthritis
     Route: 042
  4. INFLECTRA [Suspect]
     Active Substance: INFLIXIMAB-DYYB
     Indication: Rheumatoid arthritis
     Route: 042
  5. INFLECTRA [Suspect]
     Active Substance: INFLIXIMAB-DYYB
     Indication: Rheumatoid arthritis
     Route: 042

REACTIONS (1)
  - Parkinson^s disease [Not Recovered/Not Resolved]
